FAERS Safety Report 10911754 (Version 1)
Quarter: 2015Q1

REPORT INFORMATION
  Report Type: Spontaneous
  Country: VE (occurrence: None)
  Receive Date: 20150310
  Receipt Date: 20150310
  Transmission Date: 20150721
  Serious: No
  Sender: FDA-Public Use
  Company Number: None

PATIENT
  Age: 7 Year
  Sex: Male
  Weight: 28 kg

DRUGS (1)
  1. RISPERIDONE. [Suspect]
     Active Substance: RISPERIDONE
     Indication: SLEEP DISORDER
     Dosage: 15 DROPS??16-MAR-2014
     Route: 048
     Dates: start: 20141105

REACTIONS (2)
  - Diabetes mellitus [None]
  - Hyperglycaemia [None]

NARRATIVE: CASE EVENT DATE: 20140316
